FAERS Safety Report 4834691-8 (Version None)
Quarter: 2005Q4

REPORT INFORMATION
  Report Type: 
  Country: None (occurrence: None)
  Receive Date: 20051122
  Receipt Date: 20051117
  Transmission Date: 20060501
  Serious: Yes (Other)
  Sender: FDA-Public Use
  Company Number: BE-GLAXOSMITHKLINE-B0401156A

PATIENT
  Sex: Male

DRUGS (6)
  1. CLAMOXYL [Suspect]
     Indication: PHARYNGITIS
     Route: 048
     Dates: start: 20051110, end: 20051110
  2. CRESTOR [Concomitant]
  3. PROTHIADEN [Concomitant]
  4. DAFALGAN CODEINE [Concomitant]
  5. STILNOCT [Concomitant]
  6. EMCONCOR [Concomitant]

REACTIONS (3)
  - ANAPHYLACTIC REACTION [None]
  - ANGIONEUROTIC OEDEMA [None]
  - DYSPNOEA [None]
